FAERS Safety Report 14148313 (Version 2)
Quarter: 2017Q4

REPORT INFORMATION
  Report Type: Spontaneous
  Country: JP (occurrence: JP)
  Receive Date: 20171101
  Receipt Date: 20171201
  Transmission Date: 20180321
  Serious: Yes (Hospitalization, Disabling)
  Sender: FDA-Public Use
  Company Number: JP-ASTELLAS-2017JP012667

PATIENT
  Age: 82 Year
  Sex: Male
  Weight: 45 kg

DRUGS (8)
  1. URIEF [Concomitant]
     Active Substance: SILODOSIN
     Indication: BENIGN PROSTATIC HYPERPLASIA
     Route: 048
     Dates: start: 20160708
  2. BETANIS [Suspect]
     Active Substance: MIRABEGRON
     Dosage: ADDITIONAL ADMINISTRATION OF 25 MG IN THE MIDDLE OF THE NIGHT
     Route: 048
     Dates: start: 2017, end: 2017
  3. STRONGER NEO MINOPHAGEN C [Concomitant]
     Indication: HEPATOCELLULAR CARCINOMA
  4. ATELEC [Concomitant]
     Active Substance: CILNIDIPINE
     Indication: HYPERTENSION
     Route: 048
     Dates: start: 20060404
  5. STRONGER NEO MINOPHAGEN C [Concomitant]
     Indication: HEPATIC CIRRHOSIS
     Route: 042
     Dates: start: 200510
  6. URIEF [Concomitant]
     Active Substance: SILODOSIN
     Route: 048
     Dates: end: 201705
  7. URIEF [Concomitant]
     Active Substance: SILODOSIN
     Route: 048
     Dates: start: 201705
  8. BETANIS [Suspect]
     Active Substance: MIRABEGRON
     Indication: POLLAKIURIA
     Route: 048
     Dates: start: 20161028, end: 20170622

REACTIONS (4)
  - Pyelonephritis [Unknown]
  - Intentional product misuse [Unknown]
  - Urinary retention [Recovered/Resolved with Sequelae]
  - Off label use [Unknown]

NARRATIVE: CASE EVENT DATE: 20161028
